FAERS Safety Report 10407445 (Version 3)
Quarter: 2015Q2

REPORT INFORMATION
  Report Type: Spontaneous
  Country: IT (occurrence: IT)
  Receive Date: 20140825
  Receipt Date: 20150515
  Transmission Date: 20150821
  Serious: Yes (Hospitalization)
  Sender: FDA-Public Use
  Company Number: IT-B.I. PHARMACEUTICALS,INC./RIDGEFIELD-2014-BI-39335IT

PATIENT
  Age: 58 Year
  Sex: Male

DRUGS (7)
  1. BISOPROLOL HEMIFUMARATE [Suspect]
     Active Substance: BISOPROLOL FUMARATE
     Indication: INTENTIONAL SELF-INJURY
     Route: 048
     Dates: start: 20130921, end: 20130921
  2. LISINOPRIL DIHYDRATE [Suspect]
     Active Substance: LISINOPRIL
     Indication: INTENTIONAL SELF-INJURY
     Route: 048
     Dates: start: 20130921, end: 20130921
  3. FRISIUM [Suspect]
     Active Substance: CLOBAZAM
     Indication: INTENTIONAL SELF-INJURY
     Route: 048
     Dates: start: 20130921, end: 20130921
  4. AGGRENOX [Suspect]
     Active Substance: ASPIRIN\DIPYRIDAMOLE
     Indication: INTENTIONAL SELF-INJURY
     Dosage: DOSE PER APPLICATION: 200+25 MG, FORMULATION:MODIFIED-RELEASE CAPSULE HARDGELATIN
     Route: 048
     Dates: start: 20130921, end: 20130921
  5. KEPPRA [Suspect]
     Active Substance: LEVETIRACETAM
     Indication: INTENTIONAL SELF-INJURY
     Dosage: FORMULATION: FILM COATED TABLET
     Route: 048
     Dates: start: 20130921, end: 20130921
  6. ZARELIS [Suspect]
     Active Substance: VENLAFAXINE HYDROCHLORIDE
     Indication: INTENTIONAL SELF-INJURY
     Route: 048
     Dates: start: 20130921, end: 20130921
  7. FINASTERIDE. [Suspect]
     Active Substance: FINASTERIDE
     Indication: INTENTIONAL SELF-INJURY
     Route: 048
     Dates: start: 20130921, end: 20130921

REACTIONS (3)
  - Vomiting [Not Recovered/Not Resolved]
  - Drug abuse [Not Recovered/Not Resolved]
  - Loss of consciousness [Not Recovered/Not Resolved]

NARRATIVE: CASE EVENT DATE: 20130921
